FAERS Safety Report 5262192-4 (Version None)
Quarter: 2007Q1

REPORT INFORMATION
  Report Type: 
  Country: None (occurrence: None)
  Receive Date: 20070311
  Receipt Date: 20070228
  Transmission Date: 20070707
  Serious: No
  Sender: FDA-Public Use
  Company Number: 2006UW04578

PATIENT
  Age: 17639 Day
  Sex: Male
  Weight: 106.8 kg

DRUGS (13)
  1. SEROQUEL [Suspect]
     Indication: SEDATION
     Dosage: 100 MG - 200 MG
     Route: 048
     Dates: start: 20040316
  2. ZYPREXA [Suspect]
     Indication: PSYCHOTIC DISORDER
     Dosage: 5 MG AND 7.5 MG
  3. ZYPREXA [Suspect]
     Indication: SCHIZOPHRENIA
     Dosage: 5 MG AND 7.5 MG
  4. ZYPREXA [Suspect]
     Indication: NERVOUSNESS
     Dosage: 5 MG AND 7.5 MG
  5. ZYPREXA [Suspect]
     Dates: start: 19970728
  6. ZYPREXA [Suspect]
     Dates: start: 19970728
  7. ZYPREXA [Suspect]
     Dates: start: 19970728
  8. RISPERDAL [Suspect]
     Indication: PSYCHOTIC DISORDER
     Dosage: 3 MG AND 7 MG
     Dates: start: 20010601, end: 20011001
  9. RISPERDAL [Suspect]
     Indication: SCHIZOPHRENIA
     Dosage: 3 MG AND 7 MG
     Dates: start: 20010601, end: 20011001
  10. RISPERDAL [Suspect]
     Indication: NERVOUSNESS
     Dosage: 3 MG AND 7 MG
     Dates: start: 20010601, end: 20011001
  11. RISPERDAL [Suspect]
     Dosage: 3 MG AND 7 MG
     Dates: end: 20060101
  12. RISPERDAL [Suspect]
     Dosage: 3 MG AND 7 MG
     Dates: end: 20060101
  13. RISPERDAL [Suspect]
     Dosage: 3 MG AND 7 MG
     Dates: end: 20060101

REACTIONS (1)
  - DIABETES MELLITUS [None]
